FAERS Safety Report 5505634-9 (Version None)
Quarter: 2007Q4

REPORT INFORMATION
  Report Type: 
  Country: None (occurrence: None)
  Receive Date: 20071102
  Receipt Date: 20071023
  Transmission Date: 20080405
  Serious: Yes (Other)
  Sender: FDA-Public Use
  Company Number: US-PFIZER INC-2007089405

PATIENT
  Sex: Female

DRUGS (2)
  1. DILANTIN [Suspect]
  2. DOXYCYCLINE [Suspect]
     Indication: PNEUMONIA

REACTIONS (7)
  - ABDOMINAL PAIN UPPER [None]
  - ANOREXIA [None]
  - DRUG LEVEL CHANGED [None]
  - GAIT DISTURBANCE [None]
  - HYPOAESTHESIA [None]
  - PNEUMONIA [None]
  - WEIGHT DECREASED [None]
